FAERS Safety Report 6038362-4 (Version None)
Quarter: 2009Q1

REPORT INFORMATION
  Report Type: 
  Country: None (occurrence: None)
  Receive Date: 20090114
  Receipt Date: 20090114
  Transmission Date: 20090719
  Serious: Yes (Death)
  Sender: FDA-Public Use
  Company Number: None

PATIENT
  Sex: Female
  Weight: 86.1834 kg

DRUGS (1)
  1. FENTANYL 50MCG/HR PATCH LOT 92452102 [Suspect]
     Indication: PAIN
     Dosage: 5MG 1 OTHER
     Route: 050
     Dates: start: 20080819, end: 20080822

REACTIONS (3)
  - FAECAL INCONTINENCE [None]
  - HALLUCINATION [None]
  - PERFORMANCE STATUS DECREASED [None]
